FAERS Safety Report 13074879 (Version 2)
Quarter: 2019Q1

REPORT INFORMATION
  Report Type: Spontaneous
  Country: US (occurrence: US)
  Receive Date: 20161230
  Receipt Date: 20190304
  Transmission Date: 20190417
  Serious: No
  Sender: FDA-Public Use
  Company Number: US-PFIZER INC-2016594559

PATIENT
  Age: 56 Year
  Sex: Male

DRUGS (7)
  1. LYRICA [Suspect]
     Active Substance: PREGABALIN
     Indication: INTERVERTEBRAL DISC DISORDER
     Dosage: 100 MG, 4X/DAY
     Route: 048
     Dates: start: 20161215
  2. BACLOFEN. [Concomitant]
     Active Substance: BACLOFEN
     Indication: INTERVERTEBRAL DISC DISORDER
     Dosage: 20 MG, THREE TIMES DAILY
     Dates: start: 20160624
  3. LYRICA [Suspect]
     Active Substance: PREGABALIN
     Indication: RADICULOPATHY
  4. BACLOFEN. [Concomitant]
     Active Substance: BACLOFEN
     Indication: RADICULOPATHY
  5. PERCOCET [Concomitant]
     Active Substance: ACETAMINOPHEN\OXYCODONE HYDROCHLORIDE
     Indication: SPINAL OSTEOARTHRITIS
     Dosage: UNK (MAY TAKE 5 A DAY FOR 10 DAYS THEN DECREASE TO QID)
     Dates: start: 20161215
  6. MS CONTIN [Concomitant]
     Active Substance: MORPHINE SULFATE
     Indication: SPINAL OSTEOARTHRITIS
     Dosage: 15 MG, 1X/DAY (AT BEDTIME)
     Route: 048
     Dates: start: 20161215
  7. LYRICA [Suspect]
     Active Substance: PREGABALIN
     Indication: SPINAL OSTEOARTHRITIS
     Dosage: 100 MG, 4X/DAY
     Route: 048
     Dates: start: 20160705

REACTIONS (1)
  - Product use issue [Unknown]

NARRATIVE: CASE EVENT DATE: 20160705
